FAERS Safety Report 21962481 (Version 1)
Quarter: 2023Q1

REPORT INFORMATION
  Report Type: Report from Study
  Country: CN (occurrence: CN)
  Receive Date: 20230207
  Receipt Date: 20230207
  Transmission Date: 20230418
  Serious: Yes (Other)
  Sender: FDA-Public Use
  Company Number: CN-TAKEDA-2023TUS012284

PATIENT
  Age: 53 Year
  Sex: Female
  Weight: 42.4 kg

DRUGS (11)
  1. IXAZOMIB [Suspect]
     Active Substance: IXAZOMIB
     Indication: Plasma cell myeloma
     Dosage: 4 MILLIGRAM, 1/WEEK
     Route: 048
     Dates: start: 20221125
  2. CEFOXITIN SODIUM [Concomitant]
     Active Substance: CEFOXITIN SODIUM
     Indication: Pyrexia
     Dosage: 2 GRAM
     Route: 042
     Dates: start: 20221124, end: 20221124
  3. METOCLOPRAMIDE HYDROCHLORIDE [Concomitant]
     Active Substance: METOCLOPRAMIDE HYDROCHLORIDE
     Indication: Prophylaxis
     Dosage: 10 MILLIGRAM, QD
     Route: 042
     Dates: start: 20221124, end: 20221124
  4. LENALIDOMIDE [Concomitant]
     Active Substance: LENALIDOMIDE
     Indication: Plasma cell myeloma
     Dosage: 25 MILLIGRAM, QD
     Route: 048
     Dates: start: 20221124
  5. ONDANSETRON HYDROCHLORIDE [Concomitant]
     Active Substance: ONDANSETRON HYDROCHLORIDE
     Indication: Prophylaxis
     Dosage: 4 MILLIGRAM, BID
     Route: 048
     Dates: start: 20221124, end: 20221203
  6. DEXAMETHASONE ACETATE [Concomitant]
     Active Substance: DEXAMETHASONE ACETATE
     Indication: Plasma cell myeloma
     Dosage: 20 MILLIGRAM, BID
     Route: 048
     Dates: start: 20221124
  7. BICYCLOL [Concomitant]
     Active Substance: BICYCLOL
     Indication: Prophylaxis
     Dosage: 25 MILLIGRAM, QD
     Route: 048
     Dates: start: 20221124
  8. ENTECAVIR [Concomitant]
     Active Substance: ENTECAVIR
     Indication: Prophylaxis
     Dosage: 0.5 MILLIGRAM, QD
     Route: 048
     Dates: start: 20221124
  9. CEFDINIR [Concomitant]
     Active Substance: CEFDINIR
     Indication: Pyrexia
     Dosage: 0.1 GRAM, TID
     Route: 048
     Dates: start: 20221124
  10. ACYCLOVIR [Concomitant]
     Active Substance: ACYCLOVIR
     Indication: Antiviral prophylaxis
     Dosage: 0.2 GRAM, TID
     Route: 048
     Dates: start: 20221124
  11. ACYCLOVIR [Concomitant]
     Active Substance: ACYCLOVIR
     Dosage: 0.2 GRAM, TID
     Route: 048
     Dates: start: 20221125, end: 20221128

REACTIONS (4)
  - Pneumonia [Recovered/Resolved]
  - Hypokalaemia [Not Recovered/Not Resolved]
  - Insomnia [Recovered/Resolved]
  - Pyrexia [Recovered/Resolved]

NARRATIVE: CASE EVENT DATE: 20221216
